FAERS Safety Report 21841645 (Version 2)
Quarter: 2023Q2

REPORT INFORMATION
  Report Type: Spontaneous
  Country: US (occurrence: US)
  Receive Date: 20230110
  Receipt Date: 20230405
  Transmission Date: 20230722
  Serious: No
  Sender: FDA-Public Use
  Company Number: US-LUPIN PHARMACEUTICALS INC.-2022-15046

PATIENT

DRUGS (2)
  1. ALBUTEROL SULFATE [Suspect]
     Active Substance: ALBUTEROL SULFATE
     Indication: Respiratory disorder
     Dosage: UNK 2 PUFFS EVERY 4 HOURS AS NEEDED
  2. ALBUTEROL SULFATE [Suspect]
     Active Substance: ALBUTEROL SULFATE
     Indication: Pneumonia

REACTIONS (4)
  - Product use in unapproved indication [Unknown]
  - Device delivery system issue [Unknown]
  - Drug dose omission by device [Unknown]
  - No adverse event [Unknown]
